FAERS Safety Report 8271630-4 (Version None)
Quarter: 2012Q2

REPORT INFORMATION
  Report Type: 
  Country: None (occurrence: None)
  Receive Date: 20120410
  Receipt Date: 20120331
  Transmission Date: 20120825
  Serious: Yes (Other)
  Sender: FDA-Public Use
  Company Number: CO-VIIV HEALTHCARE LIMITED-A0972397A

PATIENT
  Sex: Female
  Weight: 50 kg

DRUGS (2)
  1. TRIZIVIR [Concomitant]
     Dosage: 2TAB PER DAY
     Route: 048
     Dates: start: 20110301, end: 20120105
  2. FOSAMPRENAVIR CALCIUM [Suspect]
     Dosage: 1400MGD PER DAY
     Route: 048
     Dates: start: 20110301, end: 20120105

REACTIONS (5)
  - PRODUCT QUALITY ISSUE [None]
  - FEELING HOT [None]
  - DRUG HYPERSENSITIVITY [None]
  - RASH GENERALISED [None]
  - NAIL DISCOLOURATION [None]
